FAERS Safety Report 6361738 (Version 7)
Quarter: 2013Q3

REPORT INFORMATION
  Report Type: Spontaneous
  Country: US (occurrence: US)
  Receive Date: 20070719
  Receipt Date: 20130701
  Transmission Date: 20140515
  Serious: Yes (Hospitalization, Other)
  Sender: FDA-Public Use
  Company Number: US-ROCHE-494041

PATIENT
  Age: 17 Year
  Sex: Male
  Weight: 125 kg

DRUGS (7)
  1. ACCUTANE [Suspect]
     Indication: ACNE
     Dosage: STRENGTH REPORTED AS 40 MG AND 80 MG, IT WAS REPORTED THAT THE PATIENT ALTERNATED DAILY BETWEEN 40 +
     Route: 048
     Dates: start: 20001003, end: 200103
  2. VITAMIN E [Concomitant]
     Route: 048
  3. CETAPHIL [Concomitant]
     Dosage: FORM REPORTED AS CLEANSER?GENERIC REPORTED AS CETYL STEARYL ALCOHOL
     Route: 061
  4. CETAPHIL [Concomitant]
     Dosage: GENERIC REPORTED AS CETYL STEARYL ALCOHOL
     Route: 061
  5. ZITHROMAX [Concomitant]
     Indication: RESPIRATORY TRACT INFECTION
     Dosage: DRUG REPORTED AS Z-PACK. DOSAGE REGIMEN REPORTED AS DIRECTED.
     Route: 048
  6. PANCOF [Concomitant]
     Indication: COUGH
     Dosage: DOSAGE REGIMEN REPORTED AS ONE TSPQ 4HR PRN. UNIT DOSE=1 TSP
     Route: 048
  7. CLARITIN-D [Concomitant]
     Indication: ILL-DEFINED DISORDER
     Dosage: DOSAGE REGIMEN REPORTED AS ONE BID PRN.
     Route: 048

REACTIONS (9)
  - Crohn^s disease [Unknown]
  - Enterovesical fistula [Unknown]
  - Pneumaturia [Recovered/Resolved]
  - Urinary bladder abscess [Recovered/Resolved]
  - Cystitis [Recovered/Resolved]
  - Inflammatory bowel disease [Unknown]
  - Irritable bowel syndrome [Unknown]
  - Small intestinal obstruction [Unknown]
  - Weight decreased [Recovered/Resolved]
